FAERS Safety Report 21166896 (Version 1)
Quarter: 2022Q3

REPORT INFORMATION
  Report Type: Spontaneous
  Country: DE (occurrence: DE)
  Receive Date: 20220803
  Receipt Date: 20220803
  Transmission Date: 20221027
  Serious: Yes (Hospitalization, Other)
  Sender: FDA-Public Use
  Company Number: None

PATIENT
  Age: 29 Year
  Sex: Female

DRUGS (3)
  1. PROGESTERONE [Suspect]
     Active Substance: PROGESTERONE
     Indication: Assisted reproductive technology
  2. FOLLITROPIN [Suspect]
     Active Substance: FOLLITROPIN
     Indication: Assisted reproductive technology
  3. GONADOTROPHIN, CHORIONIC [Suspect]
     Active Substance: GONADOTROPHIN, CHORIONIC
     Indication: Assisted reproductive technology

REACTIONS (1)
  - Ovarian hyperstimulation syndrome [Recovered/Resolved]

NARRATIVE: CASE EVENT DATE: 20190729
